FAERS Safety Report 8067334-3 (Version None)
Quarter: 2012Q1

REPORT INFORMATION
  Report Type: 
  Country: None (occurrence: None)
  Receive Date: 20120124
  Receipt Date: 20120119
  Transmission Date: 20120608
  Serious: Yes (Hospitalization)
  Sender: FDA-Public Use
  Company Number: FR-GLAXOSMITHKLINE-B0776346A

PATIENT
  Sex: Female

DRUGS (2)
  1. ROPINIROLE HYDROCHLORIDE [Suspect]
     Indication: RESTLESS LEGS SYNDROME
     Dosage: 3MG PER DAY
     Route: 048
     Dates: start: 20100101, end: 20110828
  2. TRAMADOL HCL [Concomitant]
     Dosage: 100MG PER DAY
     Route: 048
     Dates: start: 20110801

REACTIONS (6)
  - ANHEDONIA [None]
  - MAJOR DEPRESSION [None]
  - DRUG INEFFECTIVE [None]
  - OBSESSIVE-COMPULSIVE DISORDER [None]
  - EATING DISORDER [None]
  - SUICIDAL IDEATION [None]
